FAERS Safety Report 8618594-9 (Version None)
Quarter: 2012Q3

REPORT INFORMATION
  Report Type: 
  Country: None (occurrence: None)
  Receive Date: 20120814
  Receipt Date: 20120814
  Transmission Date: 20120928
  Serious: No
  Sender: FDA-Public Use
  Company Number: None

PATIENT
  Age: 45 Year
  Sex: Male
  Weight: 81.6475 kg

DRUGS (1)
  1. LAMICTAL [Suspect]
     Dosage: 100 MG, 4 TABLETS EACH AM.

REACTIONS (4)
  - DYSKINESIA [None]
  - MOTOR DYSFUNCTION [None]
  - STRESS [None]
  - COORDINATION ABNORMAL [None]
